FAERS Safety Report 5152488-9 (Version None)
Quarter: 2006Q4

REPORT INFORMATION
  Report Type: 
  Country: None (occurrence: None)
  Receive Date: 20061116
  Receipt Date: 20061114
  Transmission Date: 20070319
  Serious: Yes (Hospitalization)
  Sender: FDA-Public Use
  Company Number: US-BRISTOL-MYERS SQUIBB COMPANY-13578562

PATIENT
  Age: 62 Year
  Sex: Male
  Weight: 77 kg

DRUGS (16)
  1. PACLITAXEL [Suspect]
     Indication: NON-SMALL CELL LUNG CANCER
     Route: 042
     Dates: start: 20051115, end: 20060207
  2. CARBOPLATIN [Suspect]
     Indication: NON-SMALL CELL LUNG CANCER
     Route: 042
     Dates: start: 20060207, end: 20060207
  3. TLK286 [Suspect]
     Indication: NON-SMALL CELL LUNG CANCER
     Route: 042
     Dates: start: 20051115
  4. LEVOXYL [Concomitant]
  5. KEPPRA [Concomitant]
  6. GEMFIBROZIL [Concomitant]
  7. SPIRIVA [Concomitant]
  8. XANAX [Concomitant]
  9. LOVENOX [Concomitant]
  10. FORADIL [Concomitant]
     Dates: start: 20051121
  11. METOPROLOL TARTRATE [Concomitant]
  12. COMPAZINE [Concomitant]
     Dates: start: 20051116
  13. NYSTATIN [Concomitant]
     Dates: start: 20051116
  14. ZANTAC [Concomitant]
     Dates: start: 20051201
  15. VICODIN [Concomitant]
     Dates: start: 20051123
  16. ARANESP [Concomitant]
     Dates: start: 20051129

REACTIONS (3)
  - HYPOTENSION [None]
  - PNEUMONIA [None]
  - SYNCOPE [None]
